FAERS Safety Report 20881028 (Version 1)
Quarter: 2022Q2

REPORT INFORMATION
  Report Type: Spontaneous
  Country: US (occurrence: US)
  Receive Date: 20220526
  Receipt Date: 20220526
  Transmission Date: 20220721
  Serious: No
  Sender: FDA-Public Use
  Company Number: US-RADIUS HEALTH INC.-2021US002452

PATIENT
  Age: 50 Year
  Sex: Female

DRUGS (3)
  1. TYMLOS [Suspect]
     Active Substance: ABALOPARATIDE
     Indication: Osteoporosis
     Dosage: 80 MICROGRAM, QD
     Route: 058
     Dates: start: 20210423, end: 202202
  2. ESTRACE [Concomitant]
     Active Substance: ESTRADIOL
     Indication: Product used for unknown indication
  3. ALGAECAL PLUS [Concomitant]
     Indication: Product used for unknown indication

REACTIONS (14)
  - Ear pain [Recovered/Resolved]
  - Tinnitus [Recovered/Resolved]
  - Bruxism [Recovered/Resolved]
  - Burning sensation [Recovered/Resolved]
  - Skin burning sensation [Recovered/Resolved]
  - Toothache [Recovered/Resolved]
  - Hyperaesthesia teeth [Not Recovered/Not Resolved]
  - Vomiting [Recovered/Resolved]
  - Diarrhoea [Recovered/Resolved]
  - Fatigue [Recovered/Resolved]
  - Insomnia [Recovered/Resolved]
  - Back pain [Recovered/Resolved]
  - Heart rate increased [Recovered/Resolved]
  - Intentional product misuse [Unknown]

NARRATIVE: CASE EVENT DATE: 20210423
